FAERS Safety Report 17023949 (Version 3)
Quarter: 2019Q4

REPORT INFORMATION
  Report Type: Spontaneous
  Country: US (occurrence: US)
  Receive Date: 20191113
  Receipt Date: 20191202
  Transmission Date: 20200122
  Serious: Yes (Other)
  Sender: FDA-Public Use
  Company Number: US-AMGEN-USASP2019185621

PATIENT
  Age: 77 Year
  Sex: Female
  Weight: 68 kg

DRUGS (1)
  1. PROLIA [Suspect]
     Active Substance: DENOSUMAB
     Indication: OSTEOPOROSIS POSTMENOPAUSAL
     Dosage: 60 MILLIGRAM
     Route: 058
     Dates: start: 20190125, end: 2019

REACTIONS (6)
  - Musculoskeletal pain [Unknown]
  - Neck pain [Unknown]
  - Neuralgia [Unknown]
  - Rash vesicular [Unknown]
  - Rash [Unknown]
  - Bone pain [Unknown]

NARRATIVE: CASE EVENT DATE: 20191030
